FAERS Safety Report 9225526 (Version 1)
Quarter: 2013Q2

REPORT INFORMATION
  Report Type: Spontaneous
  Country: DE (occurrence: DE)
  Receive Date: 20130411
  Receipt Date: 20130411
  Transmission Date: 20140414
  Serious: Yes (Other)
  Sender: FDA-Public Use
  Company Number: DE-ROCHE-1210652

PATIENT
  Age: 57 Year
  Sex: Male

DRUGS (2)
  1. RIVOTRIL [Suspect]
     Indication: EPILEPSY
     Route: 065
  2. VALIUM [Suspect]
     Indication: EPILEPSY
     Dosage: 2 X 7 MG
     Route: 065

REACTIONS (5)
  - Depression [Not Recovered/Not Resolved]
  - Drug abuse [Unknown]
  - Tooth loss [Not Recovered/Not Resolved]
  - Oedema [Not Recovered/Not Resolved]
  - Brain injury [Not Recovered/Not Resolved]
